FAERS Safety Report 4570323-4 (Version None)
Quarter: 2005Q1

REPORT INFORMATION
  Report Type: 
  Country: None (occurrence: None)
  Receive Date: 20050204
  Receipt Date: 20031218
  Transmission Date: 20050727
  Serious: Yes (Hospitalization)
  Sender: FDA-Public Use
  Company Number: DE-ROCHE-354373

PATIENT
  Age: 34 Year
  Sex: Male

DRUGS (19)
  1. DACLIZUMAB [Suspect]
     Route: 042
     Dates: end: 20031009
  2. DACLIZUMAB [Suspect]
     Route: 042
     Dates: start: 20030815, end: 20030815
  3. MYCOPHENOLATE MOFETIL [Suspect]
     Route: 048
     Dates: start: 20030920
  4. MYCOPHENOLATE MOFETIL [Suspect]
     Route: 048
     Dates: start: 20030816
  5. CYCLOSPORINE [Suspect]
     Route: 048
     Dates: start: 20031023, end: 20031221
  6. CYCLOSPORINE [Suspect]
     Route: 048
     Dates: start: 20030816
  7. METHYLPREDNISOLONE [Suspect]
     Route: 048
     Dates: start: 20030914
  8. METHYLPREDNISOLONE [Suspect]
     Route: 042
     Dates: start: 20030808
  9. TACROLIMUS [Suspect]
     Route: 048
     Dates: start: 20031222
  10. ATORVASTATIN [Concomitant]
     Route: 048
     Dates: start: 20031009
  11. CALCIUM CARBONATE [Concomitant]
     Dosage: REDUCED TO 3 GRAM DAILY ON 19 DECEMBER 2003.
     Route: 048
     Dates: start: 20030908
  12. METOPROLOL [Concomitant]
     Dosage: INCREASED TO 95 MG DAILY ON 17 DECEMBER 2003.
     Route: 048
     Dates: start: 20031124
  13. LOSARTAN [Concomitant]
     Route: 048
     Dates: start: 20030815
  14. ENALAPRIL MALEATE [Concomitant]
     Route: 048
     Dates: start: 20031024, end: 20031220
  15. PENTOXIFYLLINE [Concomitant]
  16. CALCITRIOL [Concomitant]
     Route: 048
     Dates: start: 20031009, end: 20031229
  17. RANITIDINE [Concomitant]
     Route: 048
     Dates: start: 20030815
  18. CANDESARTAN [Concomitant]
     Route: 048
     Dates: start: 20031217
  19. NADROPARIN [Concomitant]
     Route: 058
     Dates: start: 20031220

REACTIONS (4)
  - BLOOD CREATININE INCREASED [None]
  - HYPERTENSION [None]
  - KIDNEY TRANSPLANT REJECTION [None]
  - RENAL ARTERY STENOSIS [None]
